FAERS Safety Report 4714377-0 (Version None)
Quarter: 2005Q3

REPORT INFORMATION
  Report Type: 
  Country: None (occurrence: None)
  Receive Date: 20050714
  Receipt Date: 20050701
  Transmission Date: 20060218
  Serious: Yes (Death, Life-Threatening, Hospitalization, Disabling, Other)
  Sender: FDA-Public Use
  Company Number: 2005CG01207

PATIENT
  Age: 24528 Day
  Sex: Male
  Weight: 71 kg

DRUGS (14)
  1. IRESSA [Suspect]
     Indication: NON-SMALL CELL LUNG CANCER
     Route: 048
     Dates: start: 20050421, end: 20050621
  2. RADIOTHERAPY [Suspect]
     Indication: NON-SMALL CELL LUNG CANCER
     Dosage: 2 GRAYS PER DAY FIVE DAYS OVER SEVEN
     Dates: start: 20050428, end: 20050621
  3. FLECAINIDE ACETATE [Concomitant]
     Indication: PROPHYLAXIS
     Route: 048
     Dates: end: 20050629
  4. BRONCHODUAL [Concomitant]
     Indication: ASTHMA
  5. BRONCHODUAL [Concomitant]
     Indication: PNEUMONIA
  6. GAVISCON [Concomitant]
     Indication: ABDOMINAL PAIN UPPER
     Route: 048
     Dates: start: 20050515
  7. PRIMPERAN INJ [Concomitant]
     Indication: PROPHYLAXIS OF NAUSEA AND VOMITING
     Dates: start: 20050510, end: 20050511
  8. PRIMPERAN INJ [Concomitant]
     Route: 048
     Dates: start: 20050523
  9. PARIET [Concomitant]
     Indication: ABDOMINAL PAIN UPPER
     Route: 048
     Dates: start: 20050514
  10. SINTROM [Concomitant]
     Indication: THROMBOSIS PROPHYLAXIS
     Dates: end: 20050510
  11. SINTROM [Concomitant]
     Dates: start: 20050512, end: 20050513
  12. SINTROM [Concomitant]
     Dates: start: 20050518, end: 20050701
  13. TIMOPTIC [Concomitant]
     Indication: GLAUCOMA
     Route: 047
  14. OFLOCET [Concomitant]
     Indication: URINARY TRACT INFECTION
     Dates: start: 20050620

REACTIONS (6)
  - ATRIOVENTRICULAR BLOCK [None]
  - DYSPNOEA [None]
  - HYPOXIA [None]
  - PERFORMANCE STATUS DECREASED [None]
  - PULMONARY EMBOLISM [None]
  - RADIATION PNEUMONITIS [None]
